FAERS Safety Report 7383722-2 (Version None)
Quarter: 2011Q1

REPORT INFORMATION
  Report Type: 
  Country: None (occurrence: None)
  Receive Date: 20110330
  Receipt Date: 20110328
  Transmission Date: 20110831
  Serious: Yes (Death)
  Sender: FDA-Public Use
  Company Number: VE-PFIZER INC-2011069906

PATIENT
  Age: 83 Year
  Sex: Male

DRUGS (3)
  1. LIPITOR [Suspect]
     Indication: HYPERCHOLESTEROLAEMIA
     Dosage: 40 MG, 1X/DAY
     Route: 048
     Dates: start: 20020101, end: 20090101
  2. PLAVIX [Concomitant]
     Indication: PERIPHERAL VASCULAR DISORDER
     Dosage: 75 MG, ALTERNATE DAY
     Route: 048
  3. MORPHINE [Concomitant]
     Indication: ANALGESIC THERAPY
     Dosage: UNK
     Route: 048

REACTIONS (1)
  - METASTASIS [None]
